FAERS Safety Report 21584391 (Version 2)
Quarter: 2022Q4

REPORT INFORMATION
  Report Type: Report from Study
  Country: US (occurrence: US)
  Receive Date: 20221111
  Receipt Date: 20221121
  Transmission Date: 20230113
  Serious: Yes (Hospitalization)
  Sender: FDA-Public Use
  Company Number: US-G1 THERAPEUTICS-2022G1US0000246

PATIENT

DRUGS (26)
  1. TRILACICLIB [Suspect]
     Active Substance: TRILACICLIB
     Indication: Myelosuppression
     Dosage: 364.8 MG: 240 MG/M2 ADMINISTERED ON DAY 1 AND 8 OF A 21-DAY CYCLE
     Route: 041
     Dates: start: 20221010, end: 20221010
  2. TRILACICLIB [Suspect]
     Active Substance: TRILACICLIB
     Dosage: 362.4 MG: 240 MG/M2 ADMINISTERED ON DAY 1 AND 8 OF A 21-DAY CYCLE
     Route: 041
     Dates: start: 20221017, end: 20221017
  3. CARBOPLATIN [Suspect]
     Active Substance: CARBOPLATIN
     Indication: Triple negative breast cancer
     Dosage: 171 MG: AUC2 ADMINISTERED ON DAY 1 AND 8 OF A 21-DAY CYCLE
     Route: 041
     Dates: start: 20221010, end: 20221010
  4. CARBOPLATIN [Suspect]
     Active Substance: CARBOPLATIN
     Dosage: 170 MG: AUC2 ADMINISTERED ON DAY 1 AND 8 OF A 21-DAY CYCLE
     Route: 041
     Dates: start: 20221017, end: 20221017
  5. GEMCITABINE [Suspect]
     Active Substance: GEMCITABINE
     Indication: Triple negative breast cancer
     Dosage: 1520 MG: 1000 MG/M2 ADMINISTERED ON DAY 1 AND 8 OF A 21-DAY CYCLE
     Route: 041
     Dates: start: 20221010, end: 20221010
  6. GEMCITABINE [Suspect]
     Active Substance: GEMCITABINE
     Dosage: 1510 MG: 1000 MG/M2 ADMINISTERED ON DAY 1 AND 8 OF A 21-DAY CYCLE
     Route: 041
     Dates: start: 20221017, end: 20221017
  7. TEGRETOL [Concomitant]
     Active Substance: CARBAMAZEPINE
     Indication: Seizure
     Dosage: 400 MG, BID
     Route: 048
     Dates: start: 2012
  8. PLAVIX [Concomitant]
     Active Substance: CLOPIDOGREL BISULFATE
     Indication: Coronary artery disease
     Dosage: 75 MG, QD
     Route: 048
     Dates: start: 2012
  9. ASPIRIN [Concomitant]
     Active Substance: ASPIRIN
     Indication: Coronary artery disease
     Dosage: 81 MG, QD
     Route: 048
     Dates: start: 2012
  10. ATORVASTATIN [Concomitant]
     Active Substance: ATORVASTATIN
     Indication: Coronary artery disease
     Dosage: 40 MG, QD
     Route: 048
     Dates: start: 2012
  11. ALBUTEROL SULFATE [Concomitant]
     Active Substance: ALBUTEROL SULFATE
     Indication: Asthma
     Dosage: 90 UG, PRN
     Route: 055
     Dates: start: 2013
  12. MINERALS\VITAMINS [Concomitant]
     Active Substance: MINERALS\VITAMINS
     Indication: Nutritional supplementation
     Dosage: 1 TABLET, QD
     Route: 048
     Dates: start: 2013
  13. ADVAIR HFA [Concomitant]
     Active Substance: FLUTICASONE PROPIONATE\SALMETEROL XINAFOATE
     Indication: Asthma
     Dosage: 250 UG, PRN
     Route: 055
     Dates: start: 2013
  14. EPIPEN [Concomitant]
     Active Substance: EPINEPHRINE
     Indication: Drug hypersensitivity
     Dosage: 0.3 MG, PRN
     Route: 058
     Dates: start: 2013
  15. EPIPEN [Concomitant]
     Active Substance: EPINEPHRINE
     Indication: Food allergy
  16. EVISTA [Concomitant]
     Active Substance: RALOXIFENE HYDROCHLORIDE
     Indication: Osteoporosis
     Dosage: 60 MG, QD
     Route: 048
     Dates: start: 2013
  17. METOPROLOL TARTRATE [Concomitant]
     Active Substance: METOPROLOL TARTRATE
     Indication: Hypertension
     Dosage: 75 MG, QD
     Route: 048
     Dates: start: 2018
  18. AMIODARONE [Concomitant]
     Active Substance: AMIODARONE
     Indication: Arrhythmia prophylaxis
     Dosage: 200 MG, QD
     Route: 048
     Dates: start: 2018
  19. FERROUS SULFATE [Concomitant]
     Active Substance: FERROUS SULFATE
     Indication: Iron deficiency
     Dosage: 325 MG, QD
     Route: 048
     Dates: start: 20191016
  20. LOSARTAN [Concomitant]
     Active Substance: LOSARTAN
     Indication: Hypertension
     Dosage: 25 MG, QD
     Route: 048
     Dates: start: 20210225
  21. LEVOTHYROXINE [Concomitant]
     Active Substance: LEVOTHYROXINE
     Indication: Hypothyroidism
     Dosage: 50 UG, QD
     Route: 048
     Dates: start: 20220225
  22. OMEPRAZOLE [Concomitant]
     Active Substance: OMEPRAZOLE
     Indication: Dyspepsia
     Dosage: 10 MG, QD
     Route: 048
     Dates: start: 20220909
  23. EUCERIN [PARAFFIN, LIQUID;PETROLATUM;WOOL FAT] [Concomitant]
     Indication: Radiation skin injury
     Dosage: 1 APPLICATION, PRN
     Route: 061
     Dates: start: 20221003
  24. ONDANSETRON [Concomitant]
     Active Substance: ONDANSETRON
     Indication: Nausea
     Dosage: 8 MG, PRN
     Route: 048
     Dates: start: 20221010
  25. HYDROCORTISONE [Concomitant]
     Active Substance: HYDROCORTISONE
     Indication: Radiation skin injury
     Dosage: 1 %, PRN
     Route: 061
     Dates: start: 20221015
  26. PREDNISONE [Concomitant]
     Active Substance: PREDNISONE
     Indication: Middle ear inflammation
     Dosage: 1 DROP INTO EAR, BID
     Route: 050
     Dates: start: 20221015

REACTIONS (3)
  - Gastrointestinal haemorrhage [Recovered/Resolved]
  - Neutropenia [Recovered/Resolved]
  - Dehydration [Recovered/Resolved]

NARRATIVE: CASE EVENT DATE: 20221101
